FAERS Safety Report 19126560 (Version 1)
Quarter: 2021Q2

REPORT INFORMATION
  Report Type: Spontaneous
  Country: US (occurrence: US)
  Receive Date: 20210412
  Receipt Date: 20210412
  Transmission Date: 20210717
  Serious: Yes (Other)
  Sender: FDA-Public Use
  Company Number: US-LUPIN PHARMACEUTICALS INC.-2021-04442

PATIENT
  Age: 62 Year
  Sex: Female

DRUGS (12)
  1. TRIAMCINOLONE ACETONIDE. [Suspect]
     Active Substance: TRIAMCINOLONE ACETONIDE
     Indication: BACK PAIN
     Dosage: 2 MILLILITER
     Route: 065
  2. DOLUTEGRAVIR [Concomitant]
     Active Substance: DOLUTEGRAVIR
     Indication: HIV INFECTION
     Dosage: 50 MILLIGRAM, QD
     Route: 065
  3. ARIPIPRAZOLE. [Suspect]
     Active Substance: ARIPIPRAZOLE
     Dosage: 5 MILLIGRAM, QD
     Route: 065
  4. TENOFOVIR ALAFENAMIDE [Concomitant]
     Active Substance: TENOFOVIR ALAFENAMIDE
     Indication: HIV INFECTION
     Dosage: 25 MILLIGRAM, QD
     Route: 065
  5. LIDOCAINE. [Concomitant]
     Active Substance: LIDOCAINE
     Indication: BACK PAIN
     Dosage: 1.5 MILLILITER (7 MILLILITER)
     Route: 065
  6. RITONAVIR. [Interacting]
     Active Substance: RITONAVIR
     Indication: HIV INFECTION
     Dosage: 100 MILLIGRAM, BID
     Route: 065
  7. DULOXETINE. [Concomitant]
     Active Substance: DULOXETINE
     Indication: MAJOR DEPRESSION
     Dosage: 60 MILLIGRAM
     Route: 065
  8. DULOXETINE. [Concomitant]
     Active Substance: DULOXETINE
     Dosage: 120 MILLIGRAM
     Route: 065
  9. MARAVIROC [Concomitant]
     Active Substance: MARAVIROC
     Indication: HIV INFECTION
     Dosage: 150 MILLIGRAM, BID
     Route: 065
  10. ARIPIPRAZOLE. [Suspect]
     Active Substance: ARIPIPRAZOLE
     Indication: MAJOR DEPRESSION
     Dosage: 2.5 MILLIGRAM, QD
     Route: 065
  11. DARUNAVIR [Interacting]
     Active Substance: DARUNAVIR
     Indication: HIV INFECTION
     Dosage: 600 MILLIGRAM, BID
     Route: 065
  12. EMTRICITABINE [Concomitant]
     Active Substance: EMTRICITABINE
     Indication: HIV INFECTION
     Dosage: 200 MILLIGRAM, QD
     Route: 065

REACTIONS (3)
  - Cushing^s syndrome [Recovered/Resolved]
  - Swelling face [Unknown]
  - Drug interaction [Unknown]
